FAERS Safety Report 14978403 (Version 2)
Quarter: 2018Q2

REPORT INFORMATION
  Report Type: Spontaneous
  Country: JP (occurrence: JP)
  Receive Date: 20180606
  Receipt Date: 20180608
  Transmission Date: 20180711
  Serious: Yes (Hospitalization)
  Sender: FDA-Public Use
  Company Number: JP-BAYER-2018-103504

PATIENT
  Sex: Female

DRUGS (4)
  1. GASMOTIN [Concomitant]
     Active Substance: MOSAPRIDE CITRATE
  2. SALIGREN [Concomitant]
  3. FOLIAMIN [Concomitant]
     Active Substance: FOLIC ACID
  4. BAYASPIRIN 100 MG [Suspect]
     Active Substance: ASPIRIN

REACTIONS (1)
  - Platelet count decreased [Recovered/Resolved]
